FAERS Safety Report 24652971 (Version 1)
Quarter: 2024Q4

REPORT INFORMATION
  Report Type: Spontaneous
  Country: US (occurrence: None)
  Receive Date: 20241122
  Receipt Date: 20241122
  Transmission Date: 20250114
  Serious: No
  Sender: Public
  Company Number: None

PATIENT
  Age: 88 Year
  Sex: Male

DRUGS (1)
  1. IRON DEXTRAN [Suspect]
     Active Substance: IRON DEXTRAN
     Indication: Chronic myeloid leukaemia
     Dosage: 100.00  MG: ONCE INTRAVENOUS?
     Route: 042
     Dates: start: 20240906, end: 20240906

REACTIONS (5)
  - Anaphylactic reaction [None]
  - Blood pressure decreased [None]
  - Syncope [None]
  - Hyperhidrosis [None]
  - Pallor [None]

NARRATIVE: CASE EVENT DATE: 20240906
